FAERS Safety Report 10160696 (Version 1)
Quarter: 2014Q2

REPORT INFORMATION
  Report Type: Spontaneous
  Country: US (occurrence: US)
  Receive Date: 20140508
  Receipt Date: 20140508
  Transmission Date: 20141212
  Serious: No
  Sender: FDA-Public Use
  Company Number: US-B.I. PHARMACEUTICALS,INC./RIDGEFIELD-2014-BI-19451BP

PATIENT
  Sex: Male

DRUGS (11)
  1. SPIRIVA [Suspect]
     Indication: CHRONIC OBSTRUCTIVE PULMONARY DISEASE
     Dosage: 18 MCG
     Route: 055
     Dates: start: 201308
  2. OMEPRAZOLE [Concomitant]
     Indication: GASTROOESOPHAGEAL REFLUX DISEASE
     Route: 048
  3. TRIAMTERENE/HCTZ [Concomitant]
     Route: 048
  4. METOPROLOL [Concomitant]
     Route: 048
  5. COUMADIN [Concomitant]
     Indication: THROMBOSIS
     Route: 048
  6. VITAMIN B12 [Concomitant]
     Route: 048
  7. SIMVASTATIN [Concomitant]
     Route: 048
  8. ZANTAC [Concomitant]
     Dosage: 300 MG
     Route: 065
  9. FOLIC ACID [Concomitant]
     Route: 048
  10. DULERA [Concomitant]
     Route: 055
  11. ALBUTEROL NEBULIZER [Concomitant]
     Route: 055

REACTIONS (1)
  - Weight increased [Not Recovered/Not Resolved]
